FAERS Safety Report 6652537-2 (Version None)
Quarter: 2010Q1

REPORT INFORMATION
  Report Type: 
  Country: None (occurrence: None)
  Receive Date: 20100325
  Receipt Date: 20100325
  Transmission Date: 20100710
  Serious: No
  Sender: FDA-Public Use
  Company Number: None

PATIENT
  Sex: Male
  Weight: 92.6 kg

DRUGS (12)
  1. CYCLOPHOSPHAMIDE [Suspect]
     Dosage: 1447 MG
  2. DOXIL [Suspect]
     Dosage: 77 MG
  3. PREDNISONE [Suspect]
     Dosage: 500 MG
  4. RITUXIMAB (MOAB C2B8 ANTI CD20, CHIMERIC) [Suspect]
     Dosage: 723 MG
  5. VINCRISTINE SULFATE [Concomitant]
     Dosage: 2 MG
  6. ATRIPLA [Concomitant]
  7. COMPAZINE [Concomitant]
  8. LORAZEPAM [Concomitant]
  9. NABUMETONE [Concomitant]
  10. PAXIL [Concomitant]
  11. RESTORIL [Concomitant]
  12. COZAAR [Concomitant]

REACTIONS (2)
  - NEUTROPHIL COUNT DECREASED [None]
  - PYREXIA [None]
